FAERS Safety Report 7197479-1 (Version None)
Quarter: 2010Q4

REPORT INFORMATION
  Report Type: 
  Country: None (occurrence: None)
  Receive Date: 20101208
  Receipt Date: 20101130
  Transmission Date: 20110411
  Serious: Yes (Hospitalization)
  Sender: FDA-Public Use
  Company Number: 2010SP062535

PATIENT
  Sex: Female

DRUGS (3)
  1. SAPHRIS [Suspect]
     Indication: BIPOLAR DISORDER
     Dosage: 5 MG; ONCE; SL
     Route: 060
     Dates: start: 20101129, end: 20101129
  2. LEXAPRO [Concomitant]
  3. DEPAKOTE [Concomitant]

REACTIONS (1)
  - UNRESPONSIVE TO STIMULI [None]
